FAERS Safety Report 7919385-4 (Version None)
Quarter: 2011Q4

REPORT INFORMATION
  Report Type: 
  Country: None (occurrence: None)
  Receive Date: 20111117
  Receipt Date: 20111109
  Transmission Date: 20120403
  Serious: Yes (Hospitalization, Other)
  Sender: FDA-Public Use
  Company Number: JP-JNJFOC-20111009751

PATIENT
  Age: 26 Year
  Sex: Male

DRUGS (2)
  1. RISPERDAL [Suspect]
     Indication: SCHIZOPHRENIA
     Route: 048
     Dates: start: 20110823
  2. RISPERDAL [Suspect]
     Route: 048
     Dates: start: 20111018

REACTIONS (2)
  - SUICIDAL IDEATION [None]
  - INTENTIONAL OVERDOSE [None]
